FAERS Safety Report 5480234-8 (Version None)
Quarter: 2007Q4

REPORT INFORMATION
  Report Type: 
  Country: None (occurrence: None)
  Receive Date: 20071009
  Receipt Date: 20071001
  Transmission Date: 20080405
  Serious: Yes (Other)
  Sender: FDA-Public Use
  Company Number: US-ROCHE-522777

PATIENT
  Age: 31 Year
  Sex: Female

DRUGS (3)
  1. ACCUTANE [Suspect]
     Indication: DRUG USE FOR UNKNOWN INDICATION
     Dosage: ACCUTANE 40-MG CAPSULES WERE DISPENSED TO THE PATIENT ON 20-FEBRUARY-2007.  PATIENT WAS ON THE DRUG+
     Route: 065
     Dates: start: 20070201, end: 20070816
  2. ACCUTANE [Suspect]
     Route: 065
     Dates: start: 20070905, end: 20070905
  3. BIRTH CONTROL PILLS [Concomitant]

REACTIONS (2)
  - NO ADVERSE REACTION [None]
  - PREGNANCY [None]
